FAERS Safety Report 10590002 (Version 1)
Quarter: 2014Q4

REPORT INFORMATION
  Report Type: Spontaneous
  Country: US (occurrence: None)
  Receive Date: 20141117
  Receipt Date: 20141117
  Transmission Date: 20150529
  Serious: No
  Sender: FDA-Public Use
  Company Number: None

PATIENT
  Age: 62 Year
  Sex: Female

DRUGS (1)
  1. OTREXUP [Suspect]
     Active Substance: METHOTREXATE
     Indication: PRODUCT USED FOR UNKNOWN INDICATION
     Dosage: 20MG, QW, SQ
     Dates: start: 201406, end: 201411

REACTIONS (4)
  - Diarrhoea [None]
  - Abdominal discomfort [None]
  - Headache [None]
  - Vertigo [None]
